FAERS Safety Report 11230257 (Version 1)
Quarter: 2015Q3

REPORT INFORMATION
  Report Type: Spontaneous
  Country: CA (occurrence: CA)
  Receive Date: 20150701
  Receipt Date: 20150701
  Transmission Date: 20151125
  Serious: Yes (Life-Threatening)
  Sender: FDA-Public Use
  Company Number: CA-TEVA-574098ACC

PATIENT
  Age: 3 Month
  Sex: Male

DRUGS (1)
  1. RANITIDINE [Suspect]
     Active Substance: RANITIDINE\RANITIDINE HYDROCHLORIDE
     Indication: GASTROOESOPHAGEAL REFLUX DISEASE
     Dosage: 4 MG/KG DAILY;
     Route: 048

REACTIONS (4)
  - Irritability [Recovered/Resolved]
  - Feeling jittery [Recovered/Resolved]
  - Overdose [Recovered/Resolved]
  - Drug dispensing error [Recovered/Resolved]
